FAERS Safety Report 23132998 (Version 1)
Quarter: 2023Q4

REPORT INFORMATION
  Report Type: Spontaneous
  Country: CN (occurrence: CN)
  Receive Date: 20231101
  Receipt Date: 20231101
  Transmission Date: 20240110
  Serious: Yes (Hospitalization, Other)
  Sender: FDA-Public Use
  Company Number: CN-SA-SAC20231027000981

PATIENT
  Age: 73 Year
  Sex: Female

DRUGS (1)
  1. ZOLPIDEM TARTRATE [Suspect]
     Active Substance: ZOLPIDEM TARTRATE
     Indication: Insomnia
     Dosage: 10 MG, QD
     Route: 048
     Dates: start: 20230921, end: 20231023

REACTIONS (4)
  - Haemorrhage intracranial [Recovering/Resolving]
  - Subcutaneous haematoma [Recovering/Resolving]
  - Fall [Recovering/Resolving]
  - Contusion [Recovering/Resolving]

NARRATIVE: CASE EVENT DATE: 20231014
